FAERS Safety Report 20104971 (Version 3)
Quarter: 2021Q4

REPORT INFORMATION
  Report Type: Spontaneous
  Country: US (occurrence: US)
  Receive Date: 20211124
  Receipt Date: 20211209
  Transmission Date: 20220303
  Serious: No
  Sender: FDA-Public Use
  Company Number: US-BIOGEN-2021BI01070563

PATIENT
  Sex: Female

DRUGS (2)
  1. VUMERITY [Suspect]
     Active Substance: DIROXIMEL FUMARATE
     Indication: Multiple sclerosis
     Route: 048
     Dates: start: 202111
  2. VUMERITY [Suspect]
     Active Substance: DIROXIMEL FUMARATE
     Route: 048
     Dates: start: 202111

REACTIONS (13)
  - Neuralgia [Unknown]
  - Anxiety [Unknown]
  - Insomnia [Unknown]
  - Muscle twitching [Unknown]
  - Pain [Unknown]
  - Pharyngeal paraesthesia [Unknown]
  - Paraesthesia [Unknown]
  - Fatigue [Unknown]
  - Balance disorder [Unknown]
  - Eye pain [Unknown]
  - Pelvic pain [Unknown]
  - Headache [Unknown]
  - Disturbance in attention [Unknown]

NARRATIVE: CASE EVENT DATE: 20210101
